FAERS Safety Report 4957377-8 (Version None)
Quarter: 2006Q1

REPORT INFORMATION
  Report Type: 
  Country: None (occurrence: None)
  Receive Date: 20060327
  Receipt Date: 20060316
  Transmission Date: 20060701
  Serious: Yes (Other)
  Sender: FDA-Public Use
  Company Number: 2006038157

PATIENT
  Age: 3 Year
  Sex: Female

DRUGS (1)
  1. BENADRYL [Suspect]
     Indication: ACCIDENTAL EXPOSURE
     Dosage: A BOTTLE OF BENADRYL LIQUID; ORAL
     Route: 048
     Dates: start: 20060301, end: 20060301

REACTIONS (3)
  - ACCIDENTAL DRUG INTAKE BY CHILD [None]
  - DYSKINESIA [None]
  - HALLUCINATION, AUDITORY [None]
